FAERS Safety Report 4688306-2 (Version None)
Quarter: 2005Q2

REPORT INFORMATION
  Report Type: 
  Country: None (occurrence: None)
  Receive Date: 20050609
  Receipt Date: 20050523
  Transmission Date: 20051028
  Serious: Yes (Death, Hospitalization)
  Sender: FDA-Public Use
  Company Number: BRO-008706

PATIENT
  Age: 78 Year
  Sex: Male

DRUGS (1)
  1. IOPAMIDOL / SOLUTRAST (BATCH # (S): [Suspect]
     Indication: NEOPLASM MALIGNANT
     Dosage: SY

REACTIONS (1)
  - ANAPHYLACTIC SHOCK [None]
